FAERS Safety Report 15861548 (Version 1)
Quarter: 2019Q1

REPORT INFORMATION
  Report Type: Spontaneous
  Country: US (occurrence: US)
  Receive Date: 20190123
  Receipt Date: 20190123
  Transmission Date: 20190417
  Serious: Yes (Other)
  Sender: FDA-Public Use
  Company Number: None

PATIENT
  Age: 70 Year
  Sex: Male
  Weight: 80.1 kg

DRUGS (2)
  1. TRAMADOL. [Concomitant]
     Active Substance: TRAMADOL
  2. LOSARTAN POTASSIUM 50 MG. TABS (GREEN IN COLOR) [Suspect]
     Active Substance: LOSARTAN POTASSIUM
     Indication: HYPERTENSION
     Dosage: ?          QUANTITY:1 TABLET(S);?
     Route: 048
     Dates: start: 20190121, end: 20190122

REACTIONS (4)
  - Abdominal pain upper [None]
  - Product substitution issue [None]
  - Dyspepsia [None]
  - Throat irritation [None]

NARRATIVE: CASE EVENT DATE: 20190121
